FAERS Safety Report 13725595 (Version 1)
Quarter: 2017Q3

REPORT INFORMATION
  Report Type: Spontaneous
  Country: US (occurrence: US)
  Receive Date: 20170706
  Receipt Date: 20170706
  Transmission Date: 20171127
  Serious: Yes (Hospitalization, Disabling)
  Sender: FDA-Public Use
  Company Number: None

PATIENT

DRUGS (1)
  1. AZITHROMYCIN ANHYDROUS. [Suspect]
     Active Substance: AZITHROMYCIN ANHYDROUS
     Indication: BRONCHITIS
     Dosage: ?          OTHER STRENGTH:MG;QUANTITY:1 TABLET(S);OTHER ROUTE:TAKE 2 TABLETS DAY ONE, THEN TAKE 1 ABLE?
     Route: 048

REACTIONS (6)
  - Vomiting [None]
  - Nausea [None]
  - Tinnitus [None]
  - Product quality issue [None]
  - Somnolence [None]
  - Diarrhoea [None]

NARRATIVE: CASE EVENT DATE: 20170504
